FAERS Safety Report 4621681-3 (Version None)
Quarter: 2005Q1

REPORT INFORMATION
  Report Type: 
  Country: None (occurrence: None)
  Receive Date: 20050329
  Receipt Date: 20050321
  Transmission Date: 20050727
  Serious: Yes (Death)
  Sender: FDA-Public Use
  Company Number: PHBS2005BR04185

PATIENT
  Sex: Female

DRUGS (1)
  1. LEPONEX [Suspect]
     Indication: AGGRESSION
     Route: 065

REACTIONS (2)
  - FULL BLOOD COUNT DECREASED [None]
  - INFECTION [None]
